FAERS Safety Report 13341512 (Version 1)
Quarter: 2017Q1

REPORT INFORMATION
  Report Type: Spontaneous
  Country: US (occurrence: US)
  Receive Date: 20170316
  Receipt Date: 20170316
  Transmission Date: 20170428
  Serious: No
  Sender: FDA-Public Use
  Company Number: US-ROCHE-1845992

PATIENT
  Age: 74 Year
  Sex: Male

DRUGS (3)
  1. PROBENECID. [Concomitant]
     Active Substance: PROBENECID
  2. VALSARTAN. [Concomitant]
     Active Substance: VALSARTAN
  3. ERIVEDGE [Suspect]
     Active Substance: VISMODEGIB
     Indication: BASAL CELL CARCINOMA
     Dosage: ON HOLD
     Route: 048
     Dates: start: 20160712

REACTIONS (1)
  - Muscle spasms [Unknown]

NARRATIVE: CASE EVENT DATE: 201609
